FAERS Safety Report 8335018-X (Version None)
Quarter: 2012Q2

REPORT INFORMATION
  Report Type: 
  Country: None (occurrence: None)
  Receive Date: 20120503
  Receipt Date: 20100326
  Transmission Date: 20120825
  Serious: No
  Sender: FDA-Public Use
  Company Number: US-TEVA-2010001827

PATIENT
  Sex: Male
  Weight: 81.266 kg

DRUGS (5)
  1. WELLBUTRIN [Concomitant]
     Indication: DEPRESSION
  2. PRISTIQ [Concomitant]
     Indication: MANIA
  3. NUVIGIL [Suspect]
     Indication: HYPERSOMNIA
     Dosage: 250 MILLIGRAM;
     Route: 048
     Dates: start: 20100201, end: 20100301
  4. NUVIGIL [Suspect]
     Indication: SOMNOLENCE
  5. PRISTIQ [Concomitant]
     Indication: FEAR

REACTIONS (1)
  - FATIGUE [None]
